FAERS Safety Report 6700929-5 (Version None)
Quarter: 2010Q2

REPORT INFORMATION
  Report Type: 
  Country: None (occurrence: None)
  Receive Date: 20100428
  Receipt Date: 20100420
  Transmission Date: 20101027
  Serious: Yes (Hospitalization)
  Sender: FDA-Public Use
  Company Number: FR-JNJFOC-20100405401

PATIENT
  Sex: Male

DRUGS (5)
  1. DURAGESIC-100 [Suspect]
     Indication: PAIN
     Route: 062
     Dates: end: 20091123
  2. DURAGESIC-100 [Suspect]
     Route: 062
     Dates: end: 20091123
  3. DURAGESIC-100 [Suspect]
     Dosage: 25+12 UG/HR
     Route: 062
     Dates: end: 20091123
  4. TRANSIPEG [Concomitant]
     Indication: CONSTIPATION
     Route: 048
  5. CALCIPARINE [Concomitant]
     Dosage: 2ML ONCE PER DAY
     Route: 058

REACTIONS (4)
  - COUGH [None]
  - GASTROINTESTINAL OBSTRUCTION [None]
  - MALNUTRITION [None]
  - SOMNOLENCE [None]
